FAERS Safety Report 10272015 (Version 2)
Quarter: 2014Q3

REPORT INFORMATION
  Report Type: Report from Study
  Country: TW (occurrence: TW)
  Receive Date: 20140702
  Receipt Date: 20140702
  Transmission Date: 20150326
  Serious: Yes (Other)
  Sender: FDA-Public Use
  Company Number: PHHY2014TW038487

PATIENT
  Sex: Male
  Weight: 59 kg

DRUGS (3)
  1. SEBIVO [Suspect]
     Active Substance: TELBIVUDINE
     Indication: HEPATITIS B
     Dosage: 600 MG, DAILY
     Route: 048
     Dates: start: 20110321, end: 20140326
  2. LISINOPRIL DIHYDRATE [Concomitant]
     Active Substance: LISINOPRIL
     Indication: PROTEINURIA
     Dosage: 5 MG, DAILY
     Route: 048
     Dates: start: 20110510
  3. PREDNISOLONE. [Concomitant]
     Active Substance: PREDNISOLONE
     Indication: INFLAMMATION
     Dosage: 25 MG, DAILY
     Route: 048
     Dates: start: 20110510, end: 20120417

REACTIONS (8)
  - Aldolase abnormal [Unknown]
  - Pyrexia [Recovering/Resolving]
  - Muscular weakness [Recovering/Resolving]
  - Gait disturbance [Unknown]
  - Hypoalbuminaemia [Unknown]
  - Blood creatine phosphokinase abnormal [Unknown]
  - Myoglobin blood present [Unknown]
  - Weight decreased [Recovered/Resolved]
